FAERS Safety Report 5528086-1 (Version None)
Quarter: 2007Q4

REPORT INFORMATION
  Report Type: 
  Country: None (occurrence: None)
  Receive Date: 20071126
  Receipt Date: 20071126
  Transmission Date: 20080405
  Serious: Yes (Other)
  Sender: FDA-Public Use
  Company Number: None

PATIENT
  Sex: Female
  Weight: 53.0709 kg

DRUGS (4)
  1. AMOXICILLIN AND CLAVULANATE POTASSIUM [Suspect]
     Indication: URINARY TRACT INFECTION
     Dosage: 875MG  BID  PO  (DURATION: TWO DOSES TAKEN)
     Route: 048
     Dates: start: 20071120, end: 20071121
  2. LAMOTRIGINE [Concomitant]
  3. TOPIRAMATE [Concomitant]
  4. PRENATAL [Concomitant]

REACTIONS (2)
  - CONDITION AGGRAVATED [None]
  - CONVULSION [None]
